FAERS Safety Report 20084917 (Version 5)
Quarter: 2022Q1

REPORT INFORMATION
  Report Type: Report from Study
  Country: US (occurrence: US)
  Receive Date: 20211118
  Receipt Date: 20220218
  Transmission Date: 20220423
  Serious: Yes (Death, Other)
  Sender: FDA-Public Use
  Company Number: US-NOVARTISPH-NVSC2021US261766

PATIENT
  Age: 0 Year
  Sex: Female
  Weight: 6.6 kg

DRUGS (1)
  1. ZOLGENSMA [Suspect]
     Active Substance: ONASEMNOGENE ABEPARVOVEC-XIOI
     Indication: Spinal muscular atrophy
     Dosage: 1 DOSAGE FORM, 33 ML ONCE/SINGLE
     Route: 042
     Dates: start: 20210819, end: 20210819

REACTIONS (20)
  - Cardiac arrest [Fatal]
  - Respiratory distress [Unknown]
  - Influenza [Unknown]
  - Blood glucose abnormal [Unknown]
  - Carbon dioxide abnormal [Unknown]
  - Blood creatinine abnormal [Unknown]
  - Anion gap increased [Unknown]
  - Blood osmolarity increased [Unknown]
  - White blood cell count increased [Unknown]
  - Haemoglobin increased [Unknown]
  - Haematocrit increased [Unknown]
  - Mean cell haemoglobin increased [Unknown]
  - Mean cell haemoglobin concentration decreased [Unknown]
  - Red cell distribution width increased [Unknown]
  - Platelet count increased [Unknown]
  - Mean platelet volume decreased [Unknown]
  - Lymphocyte count decreased [Unknown]
  - Neutrophil count increased [Unknown]
  - Basophil count decreased [Unknown]
  - Blood ketone body [Unknown]

NARRATIVE: CASE EVENT DATE: 20211115
